FAERS Safety Report 14946349 (Version 2)
Quarter: 2018Q2

REPORT INFORMATION
  Report Type: Spontaneous
  Country: US (occurrence: US)
  Receive Date: 20180529
  Receipt Date: 20180605
  Transmission Date: 20180711
  Serious: Yes (Other)
  Sender: FDA-Public Use
  Company Number: US-KITE, A GILEAD COMPANY-2048562

PATIENT
  Age: 64 Year
  Sex: Female
  Weight: 56 kg

DRUGS (19)
  1. OCEAN NASAL (SODIUM CHLORIDE) [Concomitant]
  2. OXYCODONE [Concomitant]
     Active Substance: OXYCODONE
  3. SALIVA SUBSTITUTE (CARMELLOSE SODIUM, SORBINICATE) [Concomitant]
  4. ACYCLOVIR. [Concomitant]
     Active Substance: ACYCLOVIR
  5. PROTONIX (OMEPRAZOLE) [Concomitant]
     Active Substance: OMEPRAZOLE
  6. VANCOMYCIN  (VANCOMYCIN) [Concomitant]
     Active Substance: VANCOMYCIN
  7. ALLOPURINOL. [Concomitant]
     Active Substance: ALLOPURINOL
  8. CEFEPIME [Concomitant]
     Active Substance: CEFEPIME HYDROCHLORIDE
  9. FLUCONAZOLE. [Concomitant]
     Active Substance: FLUCONAZOLE
  10. XANAX [Concomitant]
     Active Substance: ALPRAZOLAM
  11. CELEXA [Concomitant]
     Active Substance: CITALOPRAM HYDROBROMIDE
  12. FLAGYL [Concomitant]
     Active Substance: METRONIDAZOLE\METRONIDAZOLE HYDROCHLORIDE
  13. TRAZODONE [Concomitant]
     Active Substance: TRAZODONE HYDROCHLORIDE
  14. VANCOMYCIN (VANCOMYCIN) [Concomitant]
     Active Substance: VANCOMYCIN
  15. FAMOTIDINE. [Concomitant]
     Active Substance: FAMOTIDINE
  16. YESCARTA [Suspect]
     Active Substance: AXICABTAGENE CILOLEUCEL
     Indication: DIFFUSE LARGE B-CELL LYMPHOMA REFRACTORY
     Route: 042
     Dates: start: 20180514, end: 20180514
  17. KEPPRA [Concomitant]
     Active Substance: LEVETIRACETAM
  18. TRAZODONE [Concomitant]
     Active Substance: TRAZODONE HYDROCHLORIDE
  19. POTASSIUM PHOSPHATES [Concomitant]
     Active Substance: POTASSIUM PHOSPHATE, DIBASIC\POTASSIUM PHOSPHATE, MONOBASIC

REACTIONS (7)
  - C-reactive protein increased [Not Recovered/Not Resolved]
  - Cytokine release syndrome [Not Recovered/Not Resolved]
  - White blood cell count decreased [Recovered/Resolved]
  - Serum ferritin increased [Not Recovered/Not Resolved]
  - Neutrophil count decreased [Recovered/Resolved]
  - Encephalopathy [Not Recovered/Not Resolved]
  - Thrombocytopenia [Not Recovered/Not Resolved]

NARRATIVE: CASE EVENT DATE: 20180514
